FAERS Safety Report 5157381-3 (Version None)
Quarter: 2006Q4

REPORT INFORMATION
  Report Type: 
  Country: None (occurrence: None)
  Receive Date: 20061127
  Receipt Date: 20061115
  Transmission Date: 20070319
  Serious: Yes (Other)
  Sender: FDA-Public Use
  Company Number: SE-GLAXOSMITHKLINE-B0446623A

PATIENT
  Age: 28 Year
  Sex: Female

DRUGS (1)
  1. ACETAMINOPHEN [Suspect]
     Dosage: 25G PER DAY
     Route: 048
     Dates: start: 20061027, end: 20061027

REACTIONS (3)
  - DRUG TOXICITY [None]
  - OVERDOSE [None]
  - VOMITING [None]
